FAERS Safety Report 20541276 (Version 1)
Quarter: 2022Q1

REPORT INFORMATION
  Report Type: Spontaneous
  Country: AU (occurrence: AU)
  Receive Date: 20220302
  Receipt Date: 20220302
  Transmission Date: 20220423
  Serious: Yes (Other)
  Sender: FDA-Public Use
  Company Number: AU-JNJFOC-20211023289

PATIENT

DRUGS (5)
  1. SPORANOX [Interacting]
     Active Substance: ITRACONAZOLE
     Indication: Product used for unknown indication
     Route: 065
  2. AMOXICILLIN\CLAVULANIC ACID [Suspect]
     Active Substance: AMOXICILLIN\CLAVULANIC ACID
     Indication: Product used for unknown indication
     Route: 065
  3. FLUTICASONE FUROATE\VILANTEROL TRIFENATATE [Interacting]
     Active Substance: FLUTICASONE FUROATE\VILANTEROL TRIFENATATE
     Indication: Product used for unknown indication
     Route: 065
  4. GENVOYA [Suspect]
     Active Substance: COBICISTAT\ELVITEGRAVIR\EMTRICITABINE\TENOFOVIR ALAFENAMIDE FUMARATE
     Indication: Product used for unknown indication
     Route: 065
  5. ERYTHROMYCIN [Interacting]
     Active Substance: ERYTHROMYCIN
     Indication: Product used for unknown indication
     Route: 065

REACTIONS (12)
  - Contusion [Unknown]
  - Cushing^s syndrome [Unknown]
  - Respiratory tract infection [Unknown]
  - Cushingoid [Unknown]
  - Swelling face [Unknown]
  - Lipohypertrophy [Unknown]
  - Myopathy [Unknown]
  - Skin atrophy [Unknown]
  - Drug interaction [Unknown]
  - Dysphonia [Unknown]
  - Hypertension [Unknown]
  - Cortisol decreased [Unknown]
